FAERS Safety Report 5318906-8 (Version None)
Quarter: 2007Q1

REPORT INFORMATION
  Report Type: 
  Country: None (occurrence: None)
  Receive Date: 20070201
  Receipt Date: 20061205
  Transmission Date: 20070707
  Serious: No
  Sender: FDA-Public Use
  Company Number: VNL_0326_2006

PATIENT
  Age: 72 Year
  Sex: Male
  Weight: 71.2147 kg

DRUGS (4)
  1. APOKYN [Suspect]
     Indication: PARKINSON'S DISEASE
     Dosage: 0.3 ML VARIABLE SC
     Route: 058
     Dates: start: 20061101
  2. MIRAPEX [Concomitant]
  3. PARCOPA [Concomitant]
  4. STALEVO 100 [Concomitant]

REACTIONS (1)
  - INJECTION SITE BRUISING [None]
